FAERS Safety Report 7048342-8 (Version None)
Quarter: 2010Q4

REPORT INFORMATION
  Report Type: 
  Country: None (occurrence: None)
  Receive Date: 20101015
  Receipt Date: 20101001
  Transmission Date: 20110411
  Serious: Yes (Hospitalization)
  Sender: FDA-Public Use
  Company Number: JP-ROCHE-727063

PATIENT
  Sex: Male

DRUGS (6)
  1. BEVACIZUMAB [Suspect]
     Indication: LARGE INTESTINE CARCINOMA
     Dosage: FIVE COURSE END
     Route: 041
     Dates: start: 20100907, end: 20100907
  2. FLUOROURACIL [Suspect]
     Indication: LARGE INTESTINE CARCINOMA
     Dosage: DOSAGE IS UNCERTAIN
     Route: 040
     Dates: end: 20100907
  3. FLUOROURACIL [Suspect]
     Dosage: DOSAGE IS UNCERTAIN
     Route: 041
     Dates: end: 20100908
  4. ELPLAT [Concomitant]
     Indication: LARGE INTESTINE CARCINOMA
     Dosage: NOTE: DOSAGE IS UNCERTAIN
     Route: 041
     Dates: end: 20100907
  5. LEUCOVORIN CALCIUM [Concomitant]
     Indication: LARGE INTESTINE CARCINOMA
     Dosage: NOTE: DOSAGE IS UNCERTAIN
     Route: 041
     Dates: end: 20100907
  6. DECADRON [Concomitant]
     Dosage: DOSAGE IS UNCERTAIN
     Route: 041
     Dates: start: 20100907, end: 20100908

REACTIONS (4)
  - ALTERED STATE OF CONSCIOUSNESS [None]
  - COMA [None]
  - HEPATIC FAILURE [None]
  - HYPERAMMONAEMIA [None]
